FAERS Safety Report 12584298 (Version 2)
Quarter: 2016Q3

REPORT INFORMATION
  Report Type: Report from Study
  Country: TW (occurrence: TW)
  Receive Date: 20160722
  Receipt Date: 20160801
  Transmission Date: 20161109
  Serious: Yes (Other)
  Sender: FDA-Public Use
  Company Number: TW-PFIZER INC-3130624

PATIENT
  Age: 57 Year
  Sex: Female

DRUGS (31)
  1. IRINOTECAN HCL [Suspect]
     Active Substance: IRINOTECAN HYDROCHLORIDE
     Dosage: 247.68 MG, CYCLIC
     Dates: start: 20140802, end: 20140802
  2. FLUOROURACIL. [Suspect]
     Active Substance: FLUOROURACIL
     Dosage: UNK
  3. BEVACIZUMAB [Suspect]
     Active Substance: BEVACIZUMAB
     Dosage: 5 MG/KG, CYCLIC
     Route: 042
     Dates: start: 20140621, end: 20140621
  4. BEVACIZUMAB [Suspect]
     Active Substance: BEVACIZUMAB
     Dosage: 5 MG/KG, 2 WEEKS
     Route: 042
     Dates: start: 20140705, end: 20140705
  5. IRINOTECAN HCL [Suspect]
     Active Substance: IRINOTECAN HYDROCHLORIDE
     Dosage: 247.68 MG, CYCLIC
     Dates: start: 20140705, end: 20140705
  6. IRINOTECAN HCL [Suspect]
     Active Substance: IRINOTECAN HYDROCHLORIDE
     Dosage: 247.68 MG, CYCLIC
     Dates: start: 20140719, end: 20140719
  7. FLUOROURACIL. [Suspect]
     Active Substance: FLUOROURACIL
     Dosage: 3990.4 MG, CYCLIC
     Dates: start: 20140802, end: 20140804
  8. IRINOTECAN HCL [Suspect]
     Active Substance: IRINOTECAN HYDROCHLORIDE
     Dosage: 247.68 MG, CYCLIC
     Dates: start: 20140621
  9. IRINOTECAN HCL [Suspect]
     Active Substance: IRINOTECAN HYDROCHLORIDE
     Dosage: 247.68 MG, CYCLIC
     Dates: start: 20140927
  10. CALCIUM FOLINATE [Suspect]
     Active Substance: LEUCOVORIN CALCIUM
     Dosage: 688 MG, CYCLIC
     Dates: start: 20140719, end: 20140719
  11. FLUOROURACIL. [Suspect]
     Active Substance: FLUOROURACIL
     Dosage: 3990.4 MG, CYCLIC
     Dates: start: 20140719, end: 20140721
  12. FLUOROURACIL. [Suspect]
     Active Substance: FLUOROURACIL
     Dosage: 3990.4 MG, UNK
     Dates: start: 20140830, end: 20140901
  13. BEVACIZUMAB [Suspect]
     Active Substance: BEVACIZUMAB
     Dosage: 5 MG/KG, 2 WEEKS
     Route: 042
     Dates: start: 20140802, end: 20140802
  14. FLUOROURACIL. [Suspect]
     Active Substance: FLUOROURACIL
     Indication: COLORECTAL CANCER METASTATIC
     Dosage: 4403.2 MG, CYCLIC
     Dates: start: 20140524, end: 20140526
  15. FLUOROURACIL. [Suspect]
     Active Substance: FLUOROURACIL
     Dosage: 3990.4 MG, CYCLIC
     Dates: start: 20140621
  16. BEVACIZUMAB [Suspect]
     Active Substance: BEVACIZUMAB
     Dosage: 5 MG/KG, 2 WEEKS
     Route: 042
     Dates: start: 20140816, end: 20140816
  17. BEVACIZUMAB [Suspect]
     Active Substance: BEVACIZUMAB
     Dosage: 5 MG/KG, 2 WEEKS
     Route: 042
     Dates: start: 20140830, end: 20140913
  18. IRINOTECAN HCL [Suspect]
     Active Substance: IRINOTECAN HYDROCHLORIDE
     Dosage: 274.67 MG, CYCLIC
     Dates: start: 20140830, end: 20140913
  19. CALCIUM FOLINATE [Suspect]
     Active Substance: LEUCOVORIN CALCIUM
     Dosage: 688 MG, CYCLIC
     Dates: start: 20140621, end: 20140621
  20. CALCIUM FOLINATE [Suspect]
     Active Substance: LEUCOVORIN CALCIUM
     Dosage: 688 MG, CYCLIC
     Dates: start: 20140830, end: 20140830
  21. FLUOROURACIL. [Suspect]
     Active Substance: FLUOROURACIL
     Dosage: 3990.4 MG, CYCLIC
     Dates: start: 20140705, end: 20140707
  22. FLUOROURACIL. [Suspect]
     Active Substance: FLUOROURACIL
     Dosage: 3990.4 MG, CYCLIC
     Dates: start: 20140816, end: 20140818
  23. IRINOTECAN HCL [Suspect]
     Active Substance: IRINOTECAN HYDROCHLORIDE
     Indication: COLORECTAL CANCER METASTATIC
     Dosage: 278.64 MG, CYCLIC
     Dates: start: 20140524, end: 20140607
  24. IRINOTECAN HCL [Suspect]
     Active Substance: IRINOTECAN HYDROCHLORIDE
     Dosage: 247.68 MG, CYCLIC
     Dates: start: 20140816, end: 20140816
  25. BEVACIZUMAB [Suspect]
     Active Substance: BEVACIZUMAB
     Dosage: 5 MG, 3 WEEKS
     Dates: start: 20140927
  26. CALCIUM FOLINATE [Suspect]
     Active Substance: LEUCOVORIN CALCIUM
     Indication: COLORECTAL CANCER METASTATIC
     Dosage: 688 MG, CYCLIC
     Dates: start: 20140524, end: 20140524
  27. CALCIUM FOLINATE [Suspect]
     Active Substance: LEUCOVORIN CALCIUM
     Dosage: 688 MG, CYCLIC
     Dates: start: 20140705, end: 20140705
  28. CALCIUM FOLINATE [Suspect]
     Active Substance: LEUCOVORIN CALCIUM
     Dosage: 688 MG, CYCLIC
     Dates: start: 20140802, end: 20140802
  29. CALCIUM FOLINATE [Suspect]
     Active Substance: LEUCOVORIN CALCIUM
     Dosage: 688 MG, CYCLIC
     Dates: start: 20140816, end: 20140816
  30. BEVACIZUMAB [Suspect]
     Active Substance: BEVACIZUMAB
     Indication: COLORECTAL CANCER METASTATIC
     Dosage: 5 MG/KG, 2 WEEKS
     Route: 042
     Dates: start: 20140524, end: 20140607
  31. BEVACIZUMAB [Suspect]
     Active Substance: BEVACIZUMAB
     Dosage: 5 MG/KG, 2 WEEKS
     Route: 042
     Dates: start: 20140719, end: 20140719

REACTIONS (7)
  - Mucosal inflammation [Recovered/Resolved]
  - Malaise [Not Recovered/Not Resolved]
  - Neutrophil count decreased [Recovered/Resolved]
  - Febrile neutropenia [Recovered/Resolved]
  - Febrile neutropenia [Recovered/Resolved]
  - Vomiting [Not Recovered/Not Resolved]
  - Pruritus [Recovered/Resolved]

NARRATIVE: CASE EVENT DATE: 20140607
